FAERS Safety Report 24730593 (Version 1)
Quarter: 2024Q4

REPORT INFORMATION
  Report Type: Report from Study
  Country: US (occurrence: US)
  Receive Date: 20241213
  Receipt Date: 20241213
  Transmission Date: 20250115
  Serious: Yes (Hospitalization)
  Sender: BIOGEN
  Company Number: US-BIOGEN-2024BI01293502

PATIENT
  Sex: Female

DRUGS (1)
  1. SPINRAZA [Suspect]
     Active Substance: NUSINERSEN
     Indication: Spinal muscular atrophy
     Dosage: THREE LOADING DOSES (12MG/5ML EACH) AT 14 DAY INTERVALS. THE 4TH LOADING DOSE (12MG/5ML) SHOULD B...
     Route: 050

REACTIONS (3)
  - Bacterial infection [Unknown]
  - Inflammation [Unknown]
  - Back pain [Recovered/Resolved]
